FAERS Safety Report 6394788-0 (Version None)
Quarter: 2009Q4

REPORT INFORMATION
  Report Type: 
  Country: None (occurrence: None)
  Receive Date: 20091009
  Receipt Date: 20090824
  Transmission Date: 20100525
  Serious: No
  Sender: FDA-Public Use
  Company Number: US-BAYER-200931358NA

PATIENT
  Age: 32 Year
  Sex: Female

DRUGS (1)
  1. MIRENA [Suspect]
     Indication: VAGINAL HAEMORRHAGE
     Dosage: CONTINUOUS DELIVERY
     Route: 015
     Dates: start: 20090817

REACTIONS (7)
  - ABDOMINAL PAIN [None]
  - HYPOMENORRHOEA [None]
  - MIGRAINE [None]
  - MUSCULOSKELETAL PAIN [None]
  - NAUSEA [None]
  - VAGINAL HAEMORRHAGE [None]
  - VOMITING [None]
